FAERS Safety Report 6997518-4 (Version None)
Quarter: 2010Q3

REPORT INFORMATION
  Report Type: 
  Country: None (occurrence: None)
  Receive Date: 20100918
  Receipt Date: 20091013
  Transmission Date: 20110219
  Serious: No
  Sender: FDA-Public Use
  Company Number: US-WYE-H11626809

PATIENT
  Sex: Female

DRUGS (2)
  1. PREMPRO [Suspect]
     Indication: HORMONE REPLACEMENT THERAPY
     Dosage: 4.5 MG; UNSPECIFIED FREQUENCY
     Route: 048
  2. AMLODIPINE [Concomitant]

REACTIONS (2)
  - ALOPECIA [None]
  - VIRAL RASH [None]
